FAERS Safety Report 24195207 (Version 1)
Quarter: 2024Q3

REPORT INFORMATION
  Report Type: Spontaneous
  Country: US (occurrence: US)
  Receive Date: 20240809
  Receipt Date: 20240809
  Transmission Date: 20241017
  Serious: Yes (Death, Other)
  Sender: DR REDDYS
  Company Number: US-DRL-USA-LIT/USA/24/0011444

PATIENT
  Age: 70 Year
  Sex: Male

DRUGS (9)
  1. DOCETAXEL [Suspect]
     Active Substance: DOCETAXEL\DOCETAXEL ANHYDROUS
     Indication: Prostate cancer metastatic
     Dosage: 6 CYCLES
     Dates: start: 2017
  2. CABAZITAXEL [Suspect]
     Active Substance: CABAZITAXEL
     Indication: Prostate cancer metastatic
     Dosage: 1 CYCLE
     Dates: start: 2023
  3. CABAZITAXEL [Suspect]
     Active Substance: CABAZITAXEL
     Dosage: 1 CYCLE
     Dates: start: 2023
  4. CARBOPLATIN [Suspect]
     Active Substance: CARBOPLATIN
     Indication: Prostate cancer metastatic
     Dosage: 1 CYCLE
     Dates: start: 2023
  5. LEUPROLIDE [Concomitant]
     Active Substance: LEUPROLIDE
     Indication: Prostate cancer metastatic
     Dosage: 6 CYCLES
     Dates: start: 2017
  6. LEUPROLIDE [Concomitant]
     Active Substance: LEUPROLIDE
     Dates: start: 2017
  7. ABIRATERONE [Concomitant]
     Active Substance: ABIRATERONE
     Indication: Prostate cancer metastatic
     Dates: start: 2019
  8. RUCAPARIB [Concomitant]
     Active Substance: RUCAPARIB
     Indication: Prostate cancer metastatic
     Dates: start: 2019
  9. PEMBROLIZUMAB [Concomitant]
     Active Substance: PEMBROLIZUMAB
     Indication: Prostate cancer metastatic
     Dates: start: 2023

REACTIONS (3)
  - Septic shock [Fatal]
  - Malignant neoplasm progression [Unknown]
  - Drug ineffective [Unknown]

NARRATIVE: CASE EVENT DATE: 20230101
